FAERS Safety Report 7044046-6 (Version None)
Quarter: 2010Q4

REPORT INFORMATION
  Report Type: 
  Country: None (occurrence: None)
  Receive Date: 20101013
  Receipt Date: 20101013
  Transmission Date: 20110411
  Serious: Yes (Life-Threatening, Hospitalization)
  Sender: FDA-Public Use
  Company Number: None

PATIENT

DRUGS (1)
  1. NASACORT AQ [Suspect]
     Indication: SINUSITIS
     Dosage: 1 SPRAY DAILY ONCE AT BEDTIME
     Dates: start: 20101006, end: 20101007

REACTIONS (2)
  - CHEST DISCOMFORT [None]
  - DYSPNOEA [None]
